FAERS Safety Report 8293989-4 (Version None)
Quarter: 2012Q2

REPORT INFORMATION
  Report Type: 
  Country: None (occurrence: None)
  Receive Date: 20120418
  Receipt Date: 20120405
  Transmission Date: 20120825
  Serious: Yes (Other)
  Sender: FDA-Public Use
  Company Number: CN-JNJFOC-20120402517

PATIENT
  Age: 7 Year
  Sex: Female

DRUGS (2)
  1. REMICADE [Suspect]
     Dosage: DRUG AS 150MG  FOR 5 TIMES
     Route: 042
  2. REMICADE [Suspect]
     Indication: PSORIATIC ARTHROPATHY
     Route: 042
     Dates: start: 20110901

REACTIONS (2)
  - PSORIASIS [None]
  - ALOPECIA [None]
